FAERS Safety Report 4638132-5 (Version None)
Quarter: 2005Q2

REPORT INFORMATION
  Report Type: 
  Country: None (occurrence: None)
  Receive Date: 20050418
  Receipt Date: 20050408
  Transmission Date: 20051028
  Serious: Yes (Hospitalization)
  Sender: FDA-Public Use
  Company Number: PHBS2005ES04951

PATIENT
  Age: 71 Year
  Sex: Male

DRUGS (8)
  1. VOLTAREN [Suspect]
     Indication: HAEMARTHROSIS
     Dosage: 50 MG/DAY
     Route: 048
     Dates: start: 20040420, end: 20040921
  2. ENALAPRIL MALEATE [Suspect]
     Dosage: 5 MG/DAY
     Route: 048
     Dates: start: 20040420, end: 20040921
  3. ESTOMIL [Concomitant]
  4. ADIRO [Concomitant]
  5. PLAVIX [Concomitant]
  6. TENORMIN [Concomitant]
  7. CORDIPLAST [Concomitant]
  8. PREVENCOR [Concomitant]

REACTIONS (4)
  - BLOOD CREATININE INCREASED [None]
  - CREATININE RENAL CLEARANCE DECREASED [None]
  - DRUG INTERACTION [None]
  - RENAL FAILURE ACUTE [None]
